FAERS Safety Report 8015967-2 (Version None)
Quarter: 2011Q4

REPORT INFORMATION
  Report Type: 
  Country: None (occurrence: None)
  Receive Date: 20111223
  Receipt Date: 20111216
  Transmission Date: 20120403
  Serious: Yes (Other)
  Sender: FDA-Public Use
  Company Number: GGEL20111201618

PATIENT
  Age: 35 Year
  Sex: Female

DRUGS (5)
  1. TOPIRAMATE [Suspect]
     Indication: CONVULSION
  2. CLOBAZAM (CLOBAZAM) (CLOBAZAM) [Suspect]
     Indication: CONVULSION
     Dosage: 10 MG, ONCE DAILY
  3. KEPPRA [Suspect]
     Indication: CONVULSION
     Dosage: 3000 MG, TWICE DAILY
  4. VIMPAT [Suspect]
     Indication: CONVULSION
     Dosage: 100 MG, TWICE DAILY, 200 MG, TWICE DAILY, 300 MG, TWICE DAILY
  5. CARBAMAZEPINE [Suspect]
     Indication: CONVULSION
     Dosage: 400 MG, TWICE DAILY

REACTIONS (11)
  - ANXIETY [None]
  - FATIGUE [None]
  - DIPLOPIA [None]
  - URINARY INCONTINENCE [None]
  - CONVULSION [None]
  - SELF ESTEEM DECREASED [None]
  - AURA [None]
  - STEVENS-JOHNSON SYNDROME [None]
  - TEARFULNESS [None]
  - SLOW SPEECH [None]
  - MEMORY IMPAIRMENT [None]
